FAERS Safety Report 11579198 (Version 1)
Quarter: 2015Q3

REPORT INFORMATION
  Report Type: Spontaneous
  Country: US (occurrence: US)
  Receive Date: 20150930
  Receipt Date: 20150930
  Transmission Date: 20151125
  Serious: No
  Sender: FDA-Public Use
  Company Number: US-PFIZER INC-2015310420

PATIENT
  Age: 73 Year
  Sex: Female
  Weight: 83 kg

DRUGS (1)
  1. XALKORI [Suspect]
     Active Substance: CRIZOTINIB
     Dosage: 250 MG, 2X/DAY, (ONE AT MORNING AND ONE AT NIGHT)

REACTIONS (5)
  - Lethargy [Unknown]
  - Nausea [Unknown]
  - Feeling abnormal [Unknown]
  - Photopsia [Unknown]
  - Fatigue [Unknown]
